FAERS Safety Report 7705365-0 (Version None)
Quarter: 2011Q3

REPORT INFORMATION
  Report Type: 
  Country: None (occurrence: None)
  Receive Date: 20110823
  Receipt Date: 20110823
  Transmission Date: 20111222
  Serious: Yes (Other)
  Sender: FDA-Public Use
  Company Number: None

PATIENT
  Sex: Female
  Weight: 77.3 kg

DRUGS (2)
  1. LYRICA [Suspect]
     Indication: LYME DISEASE
     Dosage: 300MG DOWN TO 25MG PER DAY ORAL
     Route: 048
     Dates: start: 20030101, end: 20110101
  2. LYRICA [Suspect]
     Indication: PAIN
     Dosage: 300MG DOWN TO 25MG PER DAY ORAL
     Route: 048
     Dates: start: 20030101, end: 20110101

REACTIONS (3)
  - DRUG ABUSER [None]
  - MALAISE [None]
  - WITHDRAWAL SYNDROME [None]
